FAERS Safety Report 11320359 (Version 5)
Quarter: 2015Q3

REPORT INFORMATION
  Report Type: Spontaneous
  Country: GR (occurrence: GR)
  Receive Date: 20150729
  Receipt Date: 20150928
  Transmission Date: 20151125
  Serious: Yes (Hospitalization, Other)
  Sender: FDA-Public Use
  Company Number: GR-JNJFOC-20150719754

PATIENT
  Age: 81 Year
  Sex: Female

DRUGS (2)
  1. PREZOLON [Concomitant]
     Active Substance: PREDNISOLONE
     Route: 065
  2. SIMPONI [Suspect]
     Active Substance: GOLIMUMAB
     Indication: RHEUMATOID ARTHRITIS
     Route: 058
     Dates: start: 2011

REACTIONS (6)
  - Sepsis [Recovering/Resolving]
  - Hepatic calcification [Recovering/Resolving]
  - Treatment noncompliance [Unknown]
  - Diverticulum intestinal [Unknown]
  - Interstitial lung disease [Unknown]
  - Relapsing fever [Recovered/Resolved]

NARRATIVE: CASE EVENT DATE: 2011
